FAERS Safety Report 24691265 (Version 1)
Quarter: 2024Q4

REPORT INFORMATION
  Report Type: Spontaneous
  Country: JP (occurrence: JP)
  Receive Date: 20241203
  Receipt Date: 20241203
  Transmission Date: 20250114
  Serious: Yes (Other)
  Sender: ELI LILLY AND COMPANY
  Company Number: JP-MLMSERVICE-20241118-PI263746-00165-1

PATIENT
  Age: 48 Year
  Sex: Male

DRUGS (3)
  1. GEMCITABINE HYDROCHLORIDE [Suspect]
     Active Substance: GEMCITABINE HYDROCHLORIDE
     Indication: Gallbladder cancer metastatic
     Dosage: ON DAY 1 AND 8 ON 3-WEEK CYCLE; RECEIVED 5 CYCLES
     Route: 041
  2. NECITUMUMAB [Suspect]
     Active Substance: NECITUMUMAB
     Indication: Gallbladder cancer metastatic
     Dosage: DAY1 AND 8 ON 3-WEEK CYCLE; RECEIVED 5 CYCLES
     Route: 041
  3. CISPLATIN [Suspect]
     Active Substance: CISPLATIN
     Indication: Gallbladder cancer metastatic
     Dosage: ON DAY 1 OF 3-WEEK CYCLE; RECEIVED 5 CYCLES
     Route: 065

REACTIONS (2)
  - Off label use [Unknown]
  - Neutropenia [Unknown]
